FAERS Safety Report 6614485-3 (Version None)
Quarter: 2010Q1

REPORT INFORMATION
  Report Type: 
  Country: None (occurrence: None)
  Receive Date: 20100304
  Receipt Date: 20100304
  Transmission Date: 20100710
  Serious: Yes (Other)
  Sender: FDA-Public Use
  Company Number: None

PATIENT
  Age: 15 Month
  Sex: Male
  Weight: 11.3399 kg

DRUGS (1)
  1. PULMICORT RESPULES [Suspect]
     Indication: ASTHMA
     Dosage: 1 RESPULE ONCE DAILY INHAL
     Route: 055
     Dates: start: 20091225, end: 20100224

REACTIONS (8)
  - ABNORMAL BEHAVIOUR [None]
  - AGGRESSION [None]
  - ANGER [None]
  - BITE [None]
  - DEPRESSED MOOD [None]
  - HEAD BANGING [None]
  - SOCIAL AVOIDANT BEHAVIOUR [None]
  - THINKING ABNORMAL [None]
